FAERS Safety Report 4568865-0 (Version None)
Quarter: 2005Q1

REPORT INFORMATION
  Report Type: 
  Country: None (occurrence: None)
  Receive Date: 20050113
  Receipt Date: 20050113
  Transmission Date: 20050727
  Serious: Yes (Other)
  Sender: FDA-Public Use
  Company Number: None

PATIENT
  Age: 65 Year
  Sex: Male

DRUGS (1)
  1. HYTRIN [Suspect]
     Indication: HYPERTENSION
     Dosage: 10 MGM ONE QD
     Dates: start: 19730101

REACTIONS (1)
  - BLOOD PRESSURE INCREASED [None]
